FAERS Safety Report 9746291 (Version 1)
Quarter: 2013Q4

REPORT INFORMATION
  Report Type: Spontaneous
  Country: US (occurrence: None)
  Receive Date: 20131205
  Receipt Date: 20131205
  Transmission Date: 20140711
  Serious: Yes (Hospitalization)
  Sender: FDA-Public Use
  Company Number: 2013/213

PATIENT
  Age: 82 Year
  Sex: Female
  Weight: 56.3 kg

DRUGS (12)
  1. TERBINAFINE [Suspect]
     Indication: ONYCHOMYCOSIS
  2. CO-AMOXICLAV [Suspect]
     Indication: LOWER RESPIRATORY TRACT INFECTION
     Dates: end: 20121114
  3. BISOPROLOL [Concomitant]
  4. BRINZOLAMIDE [Concomitant]
  5. DIGOXIN [Concomitant]
  6. CODAMOL (CODEINE AND PARACETAMOL) [Concomitant]
  7. FUROSEMIDE [Concomitant]
  8. LANSOPRAZOLE [Concomitant]
  9. LATANOPROST [Concomitant]
  10. NITROFURANTOIN [Concomitant]
  11. RAMIPRIL [Concomitant]
  12. WARFARIN SODIUM [Concomitant]

REACTIONS (1)
  - Jaundice cholestatic [None]
